FAERS Safety Report 20619808 (Version 1)
Quarter: 2022Q1

REPORT INFORMATION
  Report Type: Spontaneous
  Country: US (occurrence: US)
  Receive Date: 20220322
  Receipt Date: 20220322
  Transmission Date: 20220423
  Serious: Yes (Hospitalization, Other)
  Sender: FDA-Public Use
  Company Number: US-SA-SAC20220316000357

PATIENT
  Age: 73 Year
  Sex: Male

DRUGS (21)
  1. PLAVIX [Suspect]
     Active Substance: CLOPIDOGREL BISULFATE
     Indication: Cushing^s syndrome
     Dates: end: 202111
  2. KORLYM [Suspect]
     Active Substance: MIFEPRISTONE
     Dates: start: 20190727
  3. ALLEGRA [Concomitant]
     Active Substance: FEXOFENADINE HYDROCHLORIDE
  4. ASPIRIN [Concomitant]
     Active Substance: ASPIRIN
  5. CREON [Concomitant]
     Active Substance: PANCRELIPASE AMYLASE\PANCRELIPASE LIPASE\PANCRELIPASE PROTEASE
  6. HYDROCHLOROTHIAZIDE [Concomitant]
     Active Substance: HYDROCHLOROTHIAZIDE
  7. HYDROXYUREA [Concomitant]
     Active Substance: HYDROXYUREA
  8. LABETALOL [Concomitant]
     Active Substance: LABETALOL\LABETALOL HYDROCHLORIDE
  9. PERCOCET [Concomitant]
     Active Substance: ACETAMINOPHEN\OXYCODONE HYDROCHLORIDE
  10. SPIRONOLACTONE [Concomitant]
     Active Substance: SPIRONOLACTONE
     Dosage: 1 TABLET
  11. XARELTO [Concomitant]
     Active Substance: RIVAROXABAN
  12. ELIQUIS [Concomitant]
     Active Substance: APIXABAN
  13. ATORVASTATIN [Concomitant]
     Active Substance: ATORVASTATIN
  14. CLONIDINE [Concomitant]
     Active Substance: CLONIDINE
  15. ANAGRELIDE [Concomitant]
     Active Substance: ANAGRELIDE
  16. FUROSEMIDE\POTASSIUM CHLORIDE [Concomitant]
     Active Substance: FUROSEMIDE\POTASSIUM CHLORIDE
     Route: 042
  17. FUROSEMIDE [Concomitant]
     Active Substance: FUROSEMIDE
  18. MAGNESIUM OXIDE [Concomitant]
     Active Substance: MAGNESIUM OXIDE
  19. KLOR-CON [Concomitant]
     Active Substance: POTASSIUM CHLORIDE
  20. ALLOPURINOL [Concomitant]
     Active Substance: ALLOPURINOL
  21. IRON [Concomitant]
     Active Substance: IRON
     Dates: start: 20210609

REACTIONS (23)
  - Carotid artery occlusion [Not Recovered/Not Resolved]
  - Cerebrovascular accident [Not Recovered/Not Resolved]
  - Cushing^s syndrome [Not Recovered/Not Resolved]
  - Gastrointestinal haemorrhage [Recovered/Resolved]
  - Haemorrhage [Unknown]
  - Intestinal obstruction [Unknown]
  - Peripheral coldness [Not Recovered/Not Resolved]
  - Blood iron decreased [Not Recovered/Not Resolved]
  - Blood potassium increased [Not Recovered/Not Resolved]
  - Fall [Not Recovered/Not Resolved]
  - Fatigue [Not Recovered/Not Resolved]
  - Platelet count increased [Recovering/Resolving]
  - Mobility decreased [Not Recovered/Not Resolved]
  - Limb mass [Recovered/Resolved]
  - Fluid retention [Not Recovered/Not Resolved]
  - Oedema peripheral [Recovering/Resolving]
  - Muscular weakness [Not Recovered/Not Resolved]
  - Pain in extremity [Not Recovered/Not Resolved]
  - Polyp [Unknown]
  - Faeces discoloured [Recovered/Resolved]
  - Heart valve incompetence [Unknown]
  - Chest pain [Recovered/Resolved]
  - Hypertension [Not Recovered/Not Resolved]

NARRATIVE: CASE EVENT DATE: 20210501
